FAERS Safety Report 8903901 (Version 2)
Quarter: 2013Q1

REPORT INFORMATION
  Report Type: Other
  Country: FR (occurrence: JP)
  Receive Date: 20121112
  Receipt Date: 20130328
  Transmission Date: 20140127
  Serious: Yes (Hospitalization)
  Sender: FDA-Public Use
  Company Number: JP-FRI-1000040297

PATIENT
  Age: 62 Year
  Sex: Female

DRUGS (3)
  1. MILNACIPRAN [Suspect]
     Indication: MAJOR DEPRESSION
     Dosage: 75 MG
     Route: 048
  2. LEVODOPA [Concomitant]
  3. PRAMIPEXOLE [Concomitant]

REACTIONS (6)
  - Parkinson^s disease [Not Recovered/Not Resolved]
  - Suicidal ideation [Recovering/Resolving]
  - Insomnia [Unknown]
  - Weight decreased [Unknown]
  - Decreased appetite [Unknown]
  - Drug ineffective [Unknown]
